FAERS Safety Report 19896283 (Version 1)
Quarter: 2021Q3

REPORT INFORMATION
  Report Type: Spontaneous
  Country: KW (occurrence: KW)
  Receive Date: 20210929
  Receipt Date: 20210929
  Transmission Date: 20211014
  Serious: Yes (Hospitalization, Other)
  Sender: FDA-Public Use
  Company Number: KW-AMGEN-KWTSP2021146414

PATIENT
  Age: 36 Year
  Sex: Female

DRUGS (8)
  1. CYCLOSPORINE. [Concomitant]
     Active Substance: CYCLOSPORINE
  2. BASILIXIMAB [Concomitant]
     Active Substance: BASILIXIMAB
  3. CINACALCET HCL [Suspect]
     Active Substance: CINACALCET HYDROCHLORIDE
     Indication: HYPERPARATHYROIDISM TERTIARY
     Dosage: UNK
     Route: 065
  4. MYCOPHENOLATE SODIUM [Concomitant]
     Active Substance: MYCOPHENOLATE SODIUM
  5. PREDNISOLONE. [Concomitant]
     Active Substance: PREDNISOLONE
     Dosage: 7.5 MILLIGRAM
  6. MYFORTIC [Concomitant]
     Active Substance: MYCOPHENOLATE SODIUM
     Dosage: 540 MILLIGRAM, BID
  7. CINACALCET HCL [Suspect]
     Active Substance: CINACALCET HYDROCHLORIDE
     Indication: OFF LABEL USE
  8. NEORAL [Concomitant]
     Active Substance: CYCLOSPORINE
     Dosage: 75 MILLIGRAM, BID

REACTIONS (2)
  - COVID-19 pneumonia [Recovered/Resolved]
  - Off label use [Unknown]

NARRATIVE: CASE EVENT DATE: 20200821
